FAERS Safety Report 18222953 (Version 2)
Quarter: 2020Q3

REPORT INFORMATION
  Report Type: Spontaneous
  Country: UZ (occurrence: UZ)
  Receive Date: 20200902
  Receipt Date: 20200916
  Transmission Date: 20201103
  Serious: Yes (Death, Other)
  Sender: FDA-Public Use
  Company Number: UZ-JNJFOC-20200836572

PATIENT
  Age: 82 Year
  Sex: Female
  Weight: 70 kg

DRUGS (6)
  1. SIRTURO [Suspect]
     Active Substance: BEDAQUILINE FUMARATE
     Indication: PULMONARY TUBERCULOSIS
     Route: 048
     Dates: start: 20190629, end: 20200720
  2. MOXIFLOXACIN. [Suspect]
     Active Substance: MOXIFLOXACIN
     Indication: PULMONARY TUBERCULOSIS
     Route: 048
     Dates: start: 20190629, end: 20200401
  3. CLOFAZIMINE [Suspect]
     Active Substance: CLOFAZIMINE
     Indication: PULMONARY TUBERCULOSIS
     Route: 048
     Dates: start: 20190629, end: 20200720
  4. LINEZOLID. [Suspect]
     Active Substance: LINEZOLID
     Indication: PULMONARY TUBERCULOSIS
     Route: 048
     Dates: start: 20190629, end: 20200618
  5. PROTHIONAMIDE [Suspect]
     Active Substance: PROTIONAMIDE
     Indication: PULMONARY TUBERCULOSIS
     Route: 048
     Dates: start: 20190629, end: 20190829
  6. CYCLOSERINE. [Suspect]
     Active Substance: CYCLOSERINE
     Indication: PULMONARY TUBERCULOSIS
     Route: 048
     Dates: start: 20190629, end: 20200720

REACTIONS (8)
  - Back pain [Unknown]
  - Intentional product use issue [Unknown]
  - Hypertension [Unknown]
  - Dizziness [Unknown]
  - Off label use [Unknown]
  - Asthenia [Unknown]
  - Polyneuropathy [Unknown]
  - Sudden death [Fatal]

NARRATIVE: CASE EVENT DATE: 202006
